FAERS Safety Report 9473294 (Version 1)
Quarter: 2013Q3

REPORT INFORMATION
  Report Type: Spontaneous
  Country: US (occurrence: US)
  Receive Date: 20130823
  Receipt Date: 20130823
  Transmission Date: 20140515
  Serious: No
  Sender: FDA-Public Use
  Company Number: US-BRISTOL-MYERS SQUIBB COMPANY-18857607

PATIENT
  Age: 56 Year
  Sex: Female
  Weight: 140.13 kg

DRUGS (18)
  1. SPRYCEL [Suspect]
     Indication: CHRONIC MYELOID LEUKAEMIA
     Route: 048
     Dates: start: 201210
  2. ZOFRAN [Concomitant]
  3. VITAMIN D [Concomitant]
  4. VICTOZA [Concomitant]
  5. TYLENOL [Concomitant]
  6. POTASSIUM CHLORIDE [Concomitant]
  7. GLUCOTROL [Concomitant]
  8. GLUCOPHAGE [Concomitant]
  9. FEXOFENADINE HCL [Concomitant]
  10. FEOSOL [Concomitant]
  11. DIOVAN [Concomitant]
  12. CRESTOR [Concomitant]
  13. COSOPT [Concomitant]
  14. CHLORTHALIDONE [Concomitant]
  15. CARVEDILOL [Concomitant]
  16. ASPIRIN [Concomitant]
  17. ACTOS [Concomitant]
  18. ADVIL [Concomitant]

REACTIONS (2)
  - Nausea [Unknown]
  - Fatigue [Unknown]
